FAERS Safety Report 6591470-1 (Version None)
Quarter: 2010Q1

REPORT INFORMATION
  Report Type: 
  Country: None (occurrence: None)
  Receive Date: 20100219
  Receipt Date: 20100209
  Transmission Date: 20100710
  Serious: Yes (Other)
  Sender: FDA-Public Use
  Company Number: US-ELI_LILLY_AND_COMPANY-US200912003190

PATIENT
  Sex: Female
  Weight: 61.224 kg

DRUGS (5)
  1. FORTEO [Suspect]
     Indication: OSTEOPOROSIS
     Dosage: 20 UG, DAILY (1/D)
     Route: 058
     Dates: start: 20090801
  2. SYNTHROID [Concomitant]
     Dosage: 88 MG, DAILY (1/D)
  3. CALCIUM PLUS D3 [Concomitant]
     Dosage: 500 MG, 3/D
  4. MULTI-VITAMIN [Concomitant]
  5. VITAMIN D [Concomitant]
     Dosage: 50000 IU, 2/W

REACTIONS (1)
  - PRESYNCOPE [None]
